FAERS Safety Report 9451972 (Version 3)
Quarter: 2013Q4

REPORT INFORMATION
  Report Type: Spontaneous
  Country: US (occurrence: US)
  Receive Date: 20130812
  Receipt Date: 20131224
  Transmission Date: 20140711
  Serious: No
  Sender: FDA-Public Use
  Company Number: US-BIOGENIDEC-2013BI072858

PATIENT
  Age: 24 Year
  Sex: Female

DRUGS (1)
  1. TYSABRI [Suspect]
     Indication: MULTIPLE SCLEROSIS
     Route: 042
     Dates: start: 20110620

REACTIONS (16)
  - Feeling hot [Recovered/Resolved]
  - Paraesthesia [Recovered/Resolved]
  - Muscular weakness [Not Recovered/Not Resolved]
  - Migraine [Not Recovered/Not Resolved]
  - Nasopharyngitis [Recovered/Resolved]
  - Fatigue [Not Recovered/Not Resolved]
  - Pyrexia [Recovered/Resolved]
  - Urinary tract infection [Recovered/Resolved]
  - Chest discomfort [Recovered/Resolved]
  - Multiple sclerosis relapse [Recovered/Resolved]
  - Ophthalmoplegia [Unknown]
  - Fall [Recovered/Resolved]
  - Heart rate increased [Recovered/Resolved]
  - Feeling abnormal [Not Recovered/Not Resolved]
  - Metamorphopsia [Recovered/Resolved]
  - Frustration [Not Recovered/Not Resolved]
